FAERS Safety Report 6887956-2 (Version None)
Quarter: 2010Q3

REPORT INFORMATION
  Report Type: 
  Country: None (occurrence: None)
  Receive Date: 20100730
  Receipt Date: 20100723
  Transmission Date: 20110219
  Serious: Yes (Hospitalization)
  Sender: FDA-Public Use
  Company Number: A0829286A

PATIENT
  Age: 44 Year
  Sex: Male

DRUGS (1)
  1. ROSIGLITAZONE MALEATE [Suspect]
     Indication: DIABETES MELLITUS
     Route: 048
     Dates: end: 20071101

REACTIONS (3)
  - CORONARY ARTERY BYPASS [None]
  - OBSTRUCTION [None]
  - STENT PLACEMENT [None]
